FAERS Safety Report 24630922 (Version 1)
Quarter: 2024Q4

REPORT INFORMATION
  Report Type: Spontaneous
  Country: US (occurrence: US)
  Receive Date: 20241118
  Receipt Date: 20241118
  Transmission Date: 20250114
  Serious: No
  Sender: TORRENT PHARMA INC.
  Company Number: US-TORRENT-00013840

PATIENT

DRUGS (1)
  1. ESCITALOPRAM [Suspect]
     Active Substance: ESCITALOPRAM OXALATE
     Indication: Product used for unknown indication
     Dosage: FOR ALMOST 2 YEARS NOW
     Route: 065

REACTIONS (2)
  - Headache [Unknown]
  - Nausea [Unknown]
